FAERS Safety Report 6938818-3 (Version None)
Quarter: 2010Q3

REPORT INFORMATION
  Report Type: 
  Country: None (occurrence: None)
  Receive Date: 20100824
  Receipt Date: 20100817
  Transmission Date: 20110219
  Serious: Yes (Death, Life-Threatening, Hospitalization)
  Sender: FDA-Public Use
  Company Number: MX-ROCHE-720680

PATIENT
  Sex: Female
  Weight: 58 kg

DRUGS (6)
  1. ROACTEMRA [Suspect]
     Dosage: FREQUENCY: ONE SINGLE DOSE
     Route: 042
     Dates: start: 20100717, end: 20100717
  2. LOSARTAN POTASSIUM [Concomitant]
     Route: 048
     Dates: start: 19900101
  3. PREDNISONE [Concomitant]
     Route: 048
     Dates: start: 20100501
  4. OMEPRAZOLE [Concomitant]
     Indication: GASTRITIS
     Route: 048
     Dates: start: 20100624
  5. METHOTREXATE [Concomitant]
     Route: 048
     Dates: start: 20100701
  6. DICLOFENAC SODIUM [Concomitant]
     Dosage: FREQUENCY : 2 QD (EVERY DAY)
     Route: 048
     Dates: start: 20100601

REACTIONS (7)
  - BONE MARROW FAILURE [None]
  - HISTIOCYTOSIS HAEMATOPHAGIC [None]
  - MULTI-ORGAN FAILURE [None]
  - PANCYTOPENIA [None]
  - PNEUMONIA [None]
  - RENAL FAILURE ACUTE [None]
  - SEPTIC SHOCK [None]
